FAERS Safety Report 16774983 (Version 1)
Quarter: 2019Q3

REPORT INFORMATION
  Report Type: Spontaneous
  Country: US (occurrence: US)
  Receive Date: 20190905
  Receipt Date: 20190905
  Transmission Date: 20191005
  Serious: Yes (Hospitalization, Other)
  Sender: FDA-Public Use
  Company Number: US-BION-008232

PATIENT
  Age: 28 Year
  Sex: Male

DRUGS (4)
  1. QUETIAPINE/QUETIAPINE FUMARATE [Concomitant]
     Indication: POST-TRAUMATIC STRESS DISORDER
  2. FLUOXETINE/FLUOXETINE HYDROCHLORIDE [Concomitant]
     Indication: POST-TRAUMATIC STRESS DISORDER
  3. LOPERAMIDE HYDROCHLORIDE. [Suspect]
     Active Substance: LOPERAMIDE HYDROCHLORIDE
     Dosage: FOR FIVE MONTHS
  4. PRAZOSIN. [Concomitant]
     Active Substance: PRAZOSIN
     Indication: POST-TRAUMATIC STRESS DISORDER

REACTIONS (7)
  - Hypertrophy [Unknown]
  - Arrhythmia [Recovered/Resolved]
  - Sinus bradycardia [Recovering/Resolving]
  - Electrocardiogram QT prolonged [Recovering/Resolving]
  - Syncope [Recovering/Resolving]
  - Ventricular tachycardia [Recovered/Resolved]
  - Drug abuse [Unknown]
